FAERS Safety Report 9338657 (Version 2)
Quarter: 2013Q3

REPORT INFORMATION
  Report Type: Spontaneous
  Country: US (occurrence: US)
  Receive Date: 20130610
  Receipt Date: 20130703
  Transmission Date: 20140515
  Serious: No
  Sender: FDA-Public Use
  Company Number: US-PFIZER INC-2013174372

PATIENT
  Age: 56 Year
  Sex: Female
  Weight: 72.6 kg

DRUGS (3)
  1. LYRICA [Suspect]
     Indication: NEUROPATHY PERIPHERAL
     Dosage: 300 MG, 3X/DAY
     Dates: end: 2013
  2. NOVOLOG [Concomitant]
     Indication: DIABETES MELLITUS
     Dosage: 30 IU, 5X/DAY
  3. HUMULIN [Concomitant]
     Indication: DIABETES MELLITUS
     Dosage: 70 IU, 2X/DAY

REACTIONS (1)
  - Pain [Unknown]
